FAERS Safety Report 8952477 (Version 1)
Quarter: 2012Q4

REPORT INFORMATION
  Report Type: 
  Country: AU (occurrence: AU)
  Receive Date: 20121205
  Receipt Date: 20121205
  Transmission Date: 20130627
  Serious: Yes (Hospitalization)
  Sender: FDA-Public Use
  Company Number: AU-009507513-1211AUS012509

PATIENT
  Age: 39 Year
  Sex: Female
  Weight: 60 kg

DRUGS (26)
  1. GONADOTROPIN, CHORIONIC [Suspect]
     Dosage: 125 IU, bid
     Route: 048
     Dates: start: 20120701, end: 20120707
  2. SKULLCAP [Concomitant]
     Dosage: UNK
  3. XANTHIUM [Concomitant]
     Dosage: UNK
  4. HERBS (UNSPECIFIED) [Concomitant]
     Dosage: UNK
  5. CHINESE GIANT HYSSOP [Concomitant]
     Dosage: UNK
  6. ANGELICA [Concomitant]
     Dosage: UNK
  7. JAPANESE HONEYSUCKLE [Concomitant]
     Dosage: 155.67 mg, UNK
  8. FORSYTHIA [Concomitant]
     Dosage: 140 mg, UNK
  9. HERBS (UNSPECIFIED) [Concomitant]
     Dosage: 2 DF, tid
  10. HERBS (UNSPECIFIED) [Concomitant]
     Dosage: 6-8 tablets after food, UNK
  11. GLYCINE MAX [Concomitant]
     Dosage: 47 mg, UNK
  12. NOTOPTERYGIUM [Concomitant]
     Dosage: 7.78 mg, UNK
  13. NOTOPTERYGIUM [Concomitant]
     Dosage: 303.5 mg, UNK
  14. NOTOPTERYGIUM [Concomitant]
     Dosage: 39 mg, UNK
  15. BURDOCK [Concomitant]
     Dosage: 93.4 mg, UNK
  16. PHRAGMITES [Concomitant]
     Dosage: 62 mg, UNK
  17. CHINESE SKULLCAP [Concomitant]
     Dosage: 46.7 mg, UNK
  18. PLATYCODON [Concomitant]
     Dosage: 46.7 mg, UNK
  19. CHINESE LICORICE [Concomitant]
     Dosage: 15.6 mg, UNK
  20. SCHIZONEPETA [Concomitant]
     Dosage: 470 nanolitre, UNK
  21. HERBS (UNSPECIFIED) [Concomitant]
  22. HERBS (UNSPECIFIED) [Concomitant]
     Dosage: 3-4 DF , before food and before bed, UNK
  23. FRAGRANT ANGELICA [Concomitant]
     Dosage: 303.5 mg, UNK
  24. CASSIA [Concomitant]
     Dosage: 303.5 mg, UNK
  25. SELAGINELLA [Concomitant]
     Dosage: 303.5 mg,UNK
  26. HERBS (UNSPECIFIED) [Concomitant]
     Dosage: 303.5 mg,UNK

REACTIONS (3)
  - Jugular vein thrombosis [Unknown]
  - Superior sagittal sinus thrombosis [Unknown]
  - Transverse sinus thrombosis [Unknown]
